FAERS Safety Report 25608348 (Version 2)
Quarter: 2025Q3

REPORT INFORMATION
  Report Type: Spontaneous
  Country: KE (occurrence: KE)
  Receive Date: 20250726
  Receipt Date: 20250814
  Transmission Date: 20251020
  Serious: Yes (Other)
  Sender: ACCORD
  Company Number: KE-Accord-496133

PATIENT
  Sex: Female

DRUGS (7)
  1. LETROZOLE [Suspect]
     Active Substance: LETROZOLE
     Indication: Breast cancer
     Dosage: STRENGTH: 2.5 MG (1 X 2.5MG TABLET), CYCLE 1
  2. ABEMACICLIB [Suspect]
     Active Substance: ABEMACICLIB
     Indication: Breast cancer
     Dosage: STRENGTH: 50 MG; 150MG BID (6 X 50MG TABLETS), CYCLE 1
  3. CALCIUM [Concomitant]
     Active Substance: CALCIUM
  4. ABEMACICLIB [Suspect]
     Active Substance: ABEMACICLIB
     Indication: Breast cancer
     Dosage: STRENGTH: 50 MG; 150MG BID (6 X 50MG TABLETS), CYCLE 2
  5. ABEMACICLIB [Suspect]
     Active Substance: ABEMACICLIB
     Indication: Breast cancer
     Dosage: STRENGTH: 50 MG; 150MG BID (6 X 50MG TABLETS), CYCLE 3
  6. LETROZOLE [Suspect]
     Active Substance: LETROZOLE
     Indication: Breast cancer
     Dosage: STRENGTH: 2.5 MG (1 X 2.5MG TABLET), CYCLE 2, 3 AND CYCLE 4
  7. ABEMACICLIB [Suspect]
     Active Substance: ABEMACICLIB
     Indication: Breast cancer
     Dosage: STRENGTH: 50 MG; 100 MG TWICE DAILY TABLETS), CYCLE 4

REACTIONS (4)
  - Neuropathy peripheral [Unknown]
  - Diarrhoea [Recovered/Resolved]
  - Back pain [Unknown]
  - Fatigue [Unknown]
